FAERS Safety Report 25254131 (Version 1)
Quarter: 2025Q2

REPORT INFORMATION
  Report Type: Spontaneous
  Country: US (occurrence: US)
  Receive Date: 20250430
  Receipt Date: 20250430
  Transmission Date: 20250716
  Serious: No
  Sender: ROCHE
  Company Number: US-ROCHE-10000264096

PATIENT
  Age: 22 Year
  Sex: Female

DRUGS (1)
  1. MYCOPHENOLATE MOFETIL [Suspect]
     Active Substance: MYCOPHENOLATE MOFETIL
     Indication: Prophylaxis against transplant rejection
     Route: 065

REACTIONS (3)
  - Cytomegalovirus infection [Unknown]
  - Maternal exposure during pregnancy [Unknown]
  - Maternal exposure before pregnancy [Unknown]
